FAERS Safety Report 12527385 (Version 1)
Quarter: 2016Q3

REPORT INFORMATION
  Report Type: Spontaneous
  Country: HU (occurrence: HU)
  Receive Date: 20160705
  Receipt Date: 20160705
  Transmission Date: 20161109
  Serious: Yes (Other)
  Sender: FDA-Public Use
  Company Number: HU-PFIZER INC-2015375098

PATIENT
  Age: 63 Year
  Sex: Male

DRUGS (2)
  1. SUTENT [Suspect]
     Active Substance: SUNITINIB MALATE
     Dosage: 50 MG, DAILY, ACCORDING TO THE 2 WEEKS TAKING, 1 WEEK BREAK SCHEMA
     Route: 048
     Dates: start: 2015
  2. SUTENT [Suspect]
     Active Substance: SUNITINIB MALATE
     Indication: CLEAR CELL RENAL CELL CARCINOMA
     Dosage: 50 MG, DAILY, ACCORDING TO THE 4 WEEKS OFF, 2 WEEKS OFF
     Route: 048
     Dates: start: 20151001, end: 2015

REACTIONS (19)
  - Monoplegia [Unknown]
  - Muscular weakness [Unknown]
  - Yellow skin [Not Recovered/Not Resolved]
  - Hair colour changes [Unknown]
  - Face oedema [Not Recovered/Not Resolved]
  - Dizziness [Unknown]
  - Testicular swelling [Recovered/Resolved]
  - Electrocardiogram abnormal [Unknown]
  - Blood thyroid stimulating hormone increased [Unknown]
  - Thrombocytopenia [Unknown]
  - Blood pressure increased [Recovered/Resolved]
  - Decreased appetite [Unknown]
  - Oedema peripheral [Unknown]
  - Disease progression [Unknown]
  - Gastric disorder [Unknown]
  - Clear cell renal cell carcinoma [Unknown]
  - Neutropenia [Unknown]
  - Nausea [Unknown]
  - Periorbital oedema [Unknown]

NARRATIVE: CASE EVENT DATE: 2015
